FAERS Safety Report 7803143-5 (Version None)
Quarter: 2011Q4

REPORT INFORMATION
  Report Type: 
  Country: None (occurrence: None)
  Receive Date: 20111007
  Receipt Date: 20110927
  Transmission Date: 20120403
  Serious: Yes (Other)
  Sender: FDA-Public Use
  Company Number: US-BAYER-2011-006227

PATIENT
  Age: 17 Year
  Sex: Female
  Weight: 79.365 kg

DRUGS (4)
  1. PROMETHAZINE HYDROCHLORIDE [Concomitant]
     Dosage: 25 MG, UNK
     Route: 048
     Dates: start: 20080611
  2. OXYCODONE HCL AND ACETAMINOPHEN [Concomitant]
     Dosage: UNK
     Route: 048
     Dates: start: 20080530
  3. YAZ [Suspect]
     Indication: CONTRACEPTION
     Dosage: UNK
     Dates: start: 20080301, end: 20081201
  4. PROPOXYPHENE-N / ACETA [Concomitant]
     Dosage: UNK
     Route: 048
     Dates: start: 20080521

REACTIONS (7)
  - NAUSEA [None]
  - ABDOMINAL PAIN [None]
  - EMOTIONAL DISTRESS [None]
  - ANXIETY [None]
  - CHOLECYSTITIS [None]
  - GALLBLADDER DISORDER [None]
  - VOMITING [None]
